FAERS Safety Report 6165062-2 (Version None)
Quarter: 2009Q2

REPORT INFORMATION
  Report Type: 
  Country: None (occurrence: None)
  Receive Date: 20090421
  Receipt Date: 20090406
  Transmission Date: 20091009
  Serious: Yes (Other)
  Sender: FDA-Public Use
  Company Number: 2009S1006025

PATIENT
  Age: 42 Year
  Sex: Male

DRUGS (6)
  1. CEFTRIAXONE [Suspect]
     Indication: WHIPPLE'S DISEASE
  2. BACTRIM [Suspect]
     Indication: WHIPPLE'S DISEASE
  3. DOXYCYCLINE [Suspect]
     Indication: WHIPPLE'S DISEASE
  4. HYDROXYCHLOROQUINE SULFATE [Suspect]
     Indication: WHIPPLE'S DISEASE
  5. STREPTOMYCIN [Suspect]
     Indication: WHIPPLE'S DISEASE
  6. GOLD [Concomitant]

REACTIONS (8)
  - DERMATITIS [None]
  - DISORDER OF ORBIT [None]
  - ERYTHEMA NODOSUM [None]
  - HERPES SIMPLEX [None]
  - IMMUNE RECONSTITUTION SYNDROME [None]
  - LYMPHOEDEMA [None]
  - MASS [None]
  - PANNICULITIS [None]
